FAERS Safety Report 23702562 (Version 1)
Quarter: 2024Q2

REPORT INFORMATION
  Report Type: Spontaneous
  Country: US (occurrence: US)
  Receive Date: 20240403
  Receipt Date: 20240403
  Transmission Date: 20240716
  Serious: Yes (Hospitalization)
  Sender: FDA-Public Use
  Company Number: US-MYLANLABS-2024M1029658

PATIENT
  Age: 60 Year
  Sex: Male

DRUGS (5)
  1. VIAGRA [Suspect]
     Active Substance: SILDENAFIL CITRATE
     Indication: Erectile dysfunction
     Dosage: UNK (INJECTION)
     Route: 065
  2. ALPROSTADIL [Suspect]
     Active Substance: ALPROSTADIL
     Indication: Erectile dysfunction
     Dosage: UNK (INJECTION)
     Route: 065
  3. PHENTOLAMINE [Suspect]
     Active Substance: PHENTOLAMINE
     Indication: Erectile dysfunction
     Dosage: UNK (INJECTION)
     Route: 065
  4. PAPAVERINE [Suspect]
     Active Substance: PAPAVERINE
     Indication: Erectile dysfunction
     Dosage: UNK
     Route: 065
  5. PHENYLEPHRINE [Suspect]
     Active Substance: PHENYLEPHRINE HYDROCHLORIDE
     Indication: Priapism
     Dosage: UNK
     Route: 065

REACTIONS (4)
  - Priapism [Recovered/Resolved]
  - Intentional product misuse [Unknown]
  - Treatment noncompliance [Unknown]
  - Off label use [Unknown]
